FAERS Safety Report 9011650 (Version 2)
Quarter: 2013Q1

REPORT INFORMATION
  Report Type: Report from Study
  Country: US (occurrence: US)
  Receive Date: 20130111
  Receipt Date: 20130206
  Transmission Date: 20140127
  Serious: Yes (Hospitalization, Other)
  Sender: FDA-Public Use
  Company Number: US-BRISTOL-MYERS SQUIBB COMPANY-17263476

PATIENT
  Age: 63 Year
  Sex: Male
  Weight: 77.3 kg

DRUGS (9)
  1. CISPLATIN [Suspect]
     Indication: HEAD AND NECK CANCER
     Route: 042
     Dates: start: 20121218
  2. MORPHINE SULFATE [Suspect]
     Dates: start: 20121205
  3. ACETYLSALICYLIC ACID [Concomitant]
     Dates: start: 2005
  4. VARENICLINE TARTRATE [Concomitant]
     Dates: start: 20121205
  5. LORAZEPAM [Concomitant]
     Dates: start: 20121205
  6. DEXAMETHASONE [Concomitant]
     Dates: start: 20121219
  7. ONDANSETRON [Concomitant]
     Dates: start: 20121219
  8. NYSTATIN [Concomitant]
  9. OXYCODONE HCL + ACETAMINOPHEN [Concomitant]
     Dates: start: 20121219

REACTIONS (6)
  - Hypoxia [Recovered/Resolved]
  - Pleural effusion [Recovered/Resolved]
  - Pulmonary oedema [Recovered/Resolved]
  - Streptococcal bacteraemia [Recovered/Resolved]
  - Pneumonia [Recovering/Resolving]
  - Ileus [Recovered/Resolved]
